FAERS Safety Report 19977938 (Version 1)
Quarter: 2021Q4

REPORT INFORMATION
  Report Type: Spontaneous
  Country: US (occurrence: US)
  Receive Date: 20211020
  Receipt Date: 20211020
  Transmission Date: 20220303
  Serious: Yes (Hospitalization)
  Sender: FDA-Public Use
  Company Number: US-FRESENIUS MEDICAL CARE RENAL THERAPIES GROUP-FMC-2109-001505

PATIENT
  Age: 59 Year
  Sex: Male
  Weight: 77 kg

DRUGS (3)
  1. DELFLEX WITH DEXTROSE 1.5% LOW MAGNESIUM [Suspect]
     Active Substance: CALCIUM CHLORIDE\DEXTROSE\MAGNESIUM CHLORIDE\SODIUM CHLORIDE\SODIUM LACTATE
     Indication: End stage renal disease
     Dosage: DELFLEX AT 2600 ML FOR 5 CYCLES WITH A LAST FILL OF 1500 ML AND NO DAYTIME EXCHANGE.
     Route: 033
     Dates: start: 20201221
  2. DELFLEX WITH DEXTROSE 2.5% LOW MAGNESIUM [Suspect]
     Active Substance: CALCIUM CHLORIDE\DEXTROSE\MAGNESIUM CHLORIDE\SODIUM CHLORIDE\SODIUM LACTATE
     Indication: End stage renal disease
     Dosage: DELFLEX AT 2600 ML FOR 5 CYCLES WITH A LAST FILL OF 1500 ML AND NO DAYTIME EXCHANGE.
     Route: 033
     Dates: start: 20201221
  3. DELFLEX WITH DEXTROSE 4.25% [Suspect]
     Active Substance: CALCIUM CHLORIDE\DEXTROSE\MAGNESIUM CHLORIDE\SODIUM CHLORIDE\SODIUM LACTATE
     Indication: End stage renal disease
     Dosage: DELFLEX AT 2600 ML FOR 5 CYCLES WITH A LAST FILL OF 1500 ML AND NO DAYTIME EXCHANGE.
     Route: 033
     Dates: start: 20201221

REACTIONS (1)
  - Peritonitis bacterial [Recovering/Resolving]
